FAERS Safety Report 7065638 (Version 2)
Quarter: 2013Q1

REPORT INFORMATION
  Report Type: Spontaneous
  Country: GB (occurrence: None)
  Receive Date: 20090720
  Receipt Date: 20130117
  Transmission Date: 20140127
  Serious: Yes (Hospitalization, Other)
  Sender: FDA-Public Use
  Company Number: 2009AP002835

PATIENT
  Sex: Male

DRUGS (2)
  1. OMEPRAZOLE [Suspect]
     Indication: PORTAL HYPERTENSIVE GASTROPATHY
  2. ANTIPSYCHOTICS (ANTIPSYCHOTICS) [Concomitant]

REACTIONS (5)
  - Hypocalcaemia [None]
  - Hypomagnesaemia [None]
  - Pyrexia [None]
  - Electrocardiogram QT prolonged [None]
  - Urinary incontinence [None]
